FAERS Safety Report 8188621 (Version 2)
Quarter: 2013Q2

REPORT INFORMATION
  Report Type: Spontaneous
  Country: US (occurrence: None)
  Receive Date: 20111007
  Receipt Date: 20130506
  Transmission Date: 20140414
  Serious: Yes (Death, Hospitalization)
  Sender: FDA-Public Use
  Company Number: 1063617

PATIENT
  Age: 69 Year
  Sex: Male

DRUGS (5)
  1. OXALIPLATIN [Suspect]
     Indication: ADENOCARCINOMA OF COLON
     Dosage: 85 MG/M^2, INTRAVENOUS (NOT OTHERWISE SPECIFIED), 65 MG/M^2, INTRAVENOUS (NOT OTHERWISE SPECIFIED)
     Route: 042
  2. OXALIPLATIN [Suspect]
     Indication: ADENOCARCINOMA OF COLON
     Dosage: 85 MG/M^2, INTRAVENOUS (NOT OTHERWISE SPECIFIED), 65 MG/M^2, INTRAVENOUS (NOT OTHERWISE SPECIFIED)
     Route: 042
  3. LEUCOVORIN CALCIUM [Concomitant]
  4. FLUOROURACIL [Concomitant]
  5. LISINOPRIL [Concomitant]

REACTIONS (2)
  - Eosinophilic pneumonia [None]
  - Diffuse alveolar damage [None]
